FAERS Safety Report 5409627-1 (Version None)
Quarter: 2007Q3

REPORT INFORMATION
  Report Type: 
  Country: None (occurrence: None)
  Receive Date: 20070807
  Receipt Date: 20070724
  Transmission Date: 20080115
  Serious: Yes (Hospitalization)
  Sender: FDA-Public Use
  Company Number: 070724-0000711

PATIENT
  Age: 57 Year
  Sex: Female

DRUGS (5)
  1. ELSPAR [Suspect]
     Indication: ACUTE LYMPHOCYTIC LEUKAEMIA
  2. DAUNORUBICIN HCL [Suspect]
     Indication: ACUTE LYMPHOCYTIC LEUKAEMIA
  3. VINCRISTINE [Suspect]
     Indication: ACUTE LYMPHOCYTIC LEUKAEMIA
  4. PREDNISONE TAB [Suspect]
     Indication: ACUTE LYMPHOCYTIC LEUKAEMIA
  5. IMATINIB MESYLATE [Concomitant]

REACTIONS (13)
  - CHILLS [None]
  - FATIGUE [None]
  - GENERAL PHYSICAL HEALTH DETERIORATION [None]
  - HEPATIC FUNCTION ABNORMAL [None]
  - LUNG CONSOLIDATION [None]
  - LUNG NEOPLASM [None]
  - NEUTROPENIA [None]
  - OPPORTUNISTIC INFECTION [None]
  - PULMONARY MASS [None]
  - PULMONARY MYCOSIS [None]
  - PYREXIA [None]
  - STEM CELL TRANSPLANT [None]
  - ZYGOMYCOSIS [None]
